FAERS Safety Report 12389130 (Version 2)
Quarter: 2016Q2

REPORT INFORMATION
  Report Type: Spontaneous
  Country: CZ (occurrence: CZ)
  Receive Date: 20160520
  Receipt Date: 20160527
  Transmission Date: 20160815
  Serious: Yes (Hospitalization, Other)
  Sender: FDA-Public Use
  Company Number: CZ-ASTRAZENECA-2016SE52707

PATIENT
  Sex: Female

DRUGS (7)
  1. FASLODEX [Suspect]
     Active Substance: FULVESTRANT
     Indication: BREAST CANCER STAGE IV
     Route: 030
  2. RADIOTHERAPY [Concomitant]
     Active Substance: RADIATION THERAPY
     Dosage: ADJUVANT, BREAST, LYMF. NODES
     Dates: start: 201008
  3. RADIOTHERAPY [Concomitant]
     Active Substance: RADIATION THERAPY
     Dosage: PALIATIVE, BACKBONE L
     Dates: start: 201601
  4. CYCLOPHOSPHAMIDE. [Concomitant]
     Active Substance: CYCLOPHOSPHAMIDE
     Indication: BREAST CANCER FEMALE
     Dates: start: 201003, end: 201007
  5. RADIOTHERAPY [Concomitant]
     Active Substance: RADIATION THERAPY
     Dosage: PALIATIVE, BACKBONE C, TH
     Dates: start: 201303
  6. DOCETAXEL. [Concomitant]
     Active Substance: DOCETAXEL
     Indication: BREAST CANCER FEMALE
     Dates: start: 201003, end: 201007
  7. DOXORUBICIN [Concomitant]
     Active Substance: DOXORUBICIN
     Indication: BREAST CANCER FEMALE
     Dates: start: 201003, end: 201007

REACTIONS (1)
  - Interstitial lung disease [Unknown]
